FAERS Safety Report 6457162-4 (Version None)
Quarter: 2009Q4

REPORT INFORMATION
  Report Type: 
  Country: None (occurrence: None)
  Receive Date: 20091125
  Receipt Date: 20091123
  Transmission Date: 20100525
  Serious: Yes (Death)
  Sender: FDA-Public Use
  Company Number: US-GILEAD-2009-0025619

PATIENT
  Sex: Female

DRUGS (10)
  1. LETAIRIS [Suspect]
     Indication: PULMONARY ARTERIAL HYPERTENSION
     Route: 048
     Dates: start: 20080325
  2. DIGITEK [Concomitant]
  3. ALDACTONE [Concomitant]
  4. PROTONIX [Concomitant]
  5. DEMADEX [Concomitant]
  6. REMODULIN [Concomitant]
  7. SODIUM CHLORIDE [Concomitant]
  8. DOXYCYCLINE [Concomitant]
  9. ERYTHROMYCIN [Concomitant]
  10. REGLAN [Concomitant]

REACTIONS (1)
  - GASTROINTESTINAL HAEMORRHAGE [None]
